FAERS Safety Report 6846249-X (Version None)
Quarter: 2010Q3

REPORT INFORMATION
  Report Type: 
  Country: None (occurrence: None)
  Receive Date: 20100715
  Receipt Date: 20070917
  Transmission Date: 20110219
  Serious: No
  Sender: FDA-Public Use
  Company Number: US-PFIZER INC-2007078480

PATIENT
  Sex: Female
  Weight: 72.7 kg

DRUGS (6)
  1. CHANTIX [Suspect]
     Indication: SMOKING CESSATION THERAPY
     Route: 048
     Dates: start: 20070901
  2. ZOCOR [Concomitant]
  3. TOPROL-XL [Concomitant]
  4. NEURONTIN [Concomitant]
  5. SPIRIVA [Concomitant]
  6. FLONASE [Concomitant]

REACTIONS (1)
  - MALAISE [None]
